FAERS Safety Report 17430267 (Version 2)
Quarter: 2020Q1

REPORT INFORMATION
  Report Type: Report from Study
  Country: TW (occurrence: TW)
  Receive Date: 20200218
  Receipt Date: 20200320
  Transmission Date: 20200409
  Serious: Yes (Death, Hospitalization)
  Sender: FDA-Public Use
  Company Number: TW-BAYER-2019-168949

PATIENT
  Age: 70 Year
  Sex: Female
  Weight: 66 kg

DRUGS (15)
  1. CO-DIOVAN [Concomitant]
     Active Substance: HYDROCHLOROTHIAZIDE\VALSARTAN
     Indication: HYPERTENSION
     Dosage: 1 DF, QD
     Dates: start: 20181120, end: 20191229
  2. PIPERACILLIN. [Concomitant]
     Active Substance: PIPERACILLIN SODIUM
     Indication: SEPSIS
     Dosage: 4 G, QID
     Dates: start: 20200204, end: 20200207
  3. ATEOL [Concomitant]
     Indication: HYPERTENSION
     Dosage: 50 MG, QD
     Dates: start: 20181125, end: 20191229
  4. PREDONINE [Concomitant]
     Active Substance: PREDNISOLONE
     Indication: ASPARTATE AMINOTRANSFERASE INCREASED
     Dosage: 5 MG, BID
     Dates: start: 20190627, end: 20190909
  5. STIVARGA [Suspect]
     Active Substance: REGORAFENIB
     Indication: HEPATOCELLULAR CARCINOMA
     Dosage: 40 UNK
     Dates: start: 20191202, end: 20200130
  6. CO-DIOVAN [Concomitant]
     Active Substance: HYDROCHLOROTHIAZIDE\VALSARTAN
     Indication: HYPERTENSION
     Dosage: 1 DF, QD
     Dates: start: 20200106, end: 20200202
  7. STIVARGA [Suspect]
     Active Substance: REGORAFENIB
     Indication: HEPATOCELLULAR CARCINOMA
     Dosage: 80 MG, QD
     Dates: start: 20190711, end: 20190909
  8. ATEOL [Concomitant]
     Indication: HYPERTENSION
     Dosage: 50 MG, QD
     Dates: start: 20200106, end: 20200203
  9. VANCOMYCIN [Concomitant]
     Active Substance: VANCOMYCIN
     Indication: SEPSIS
     Dosage: 1000 MG, ONCE
     Dates: start: 20200130, end: 20200130
  10. NORVASC [Concomitant]
     Active Substance: AMLODIPINE BESYLATE
     Indication: HYPERTENSION
     Dosage: 5 MG, QD
     Dates: start: 20181121, end: 20191229
  11. NORVASC [Concomitant]
     Active Substance: AMLODIPINE BESYLATE
     Indication: HYPERTENSION
     Dosage: 5 MG, QD
     Dates: start: 20200106, end: 20200203
  12. SIRIN [Concomitant]
     Indication: ASPARTATE AMINOTRANSFERASE INCREASED
     Dosage: 35 MG, TID
     Dates: start: 20190711, end: 20190724
  13. STIVARGA [Suspect]
     Active Substance: REGORAFENIB
     Indication: HEPATOCELLULAR CARCINOMA
     Dosage: 80 MG, QD
     Dates: start: 20190701, end: 20190706
  14. MIDAZOLAM. [Concomitant]
     Active Substance: MIDAZOLAM
     Indication: DYSPNOEA
     Dosage: 1 MG, Q1HR
     Dates: start: 20200130, end: 20200201
  15. TAZOCIN [Concomitant]
     Active Substance: PIPERACILLIN SODIUM\TAZOBACTAM SODIUM
     Indication: SEPSIS
     Dosage: 4.5 G, QID
     Dates: start: 20200130, end: 20200204

REACTIONS (6)
  - Cellulitis [Unknown]
  - Pulmonary embolism [Not Recovered/Not Resolved]
  - Sepsis [Fatal]
  - Hepatocellular carcinoma [Fatal]
  - Shock [Unknown]
  - Dyspnoea [Not Recovered/Not Resolved]

NARRATIVE: CASE EVENT DATE: 20190911
